FAERS Safety Report 6970467-3 (Version None)
Quarter: 2010Q3

REPORT INFORMATION
  Report Type: 
  Country: None (occurrence: None)
  Receive Date: 20100824
  Receipt Date: 20090629
  Transmission Date: 20110219
  Serious: Yes (Other)
  Sender: FDA-Public Use
  Company Number: 2009215427

PATIENT
  Age: 68 Year
  Sex: Female
  Weight: 49.9 kg

DRUGS (3)
  1. AMLODIPINE BESYLATE [Suspect]
     Indication: HYPERTENSION
     Dosage: 5 MG, 1X/DAY
     Dates: start: 20090120, end: 20090429
  2. ARIMIDEX [Suspect]
     Indication: BREAST CANCER
     Dosage: 1 MG
     Dates: start: 20080201, end: 20090501
  3. DILACOR XR [Suspect]
     Indication: HYPERTENSION
     Dosage: 120 MG, 1X/DAY

REACTIONS (1)
  - NEUROPATHY PERIPHERAL [None]
